FAERS Safety Report 16423504 (Version 1)
Quarter: 2019Q2

REPORT INFORMATION
  Report Type: Report from Study
  Country: None (occurrence: US)
  Receive Date: 20190613
  Receipt Date: 20190613
  Transmission Date: 20190711
  Serious: Yes (Hospitalization)
  Sender: FDA-Public Use
  Company Number: US-ABBVIE-19K-163-2813897-00

PATIENT
  Sex: Female

DRUGS (1)
  1. HUMIRA [Suspect]
     Active Substance: ADALIMUMAB
     Indication: COLITIS ULCERATIVE
     Route: 058

REACTIONS (11)
  - Mouth ulceration [Unknown]
  - Mouth ulceration [Recovered/Resolved]
  - Mouth swelling [Not Recovered/Not Resolved]
  - Stevens-Johnson syndrome [Not Recovered/Not Resolved]
  - Dysphagia [Not Recovered/Not Resolved]
  - Salivary hypersecretion [Recovering/Resolving]
  - Stomatitis [Recovered/Resolved]
  - Oral mucosal blistering [Unknown]
  - Drooling [Unknown]
  - Speech disorder [Unknown]
  - Dyspnoea [Recovered/Resolved]
